FAERS Safety Report 9783155 (Version 2)
Quarter: 2014Q1

REPORT INFORMATION
  Report Type: Spontaneous
  Country: IT (occurrence: None)
  Receive Date: 20131223
  Receipt Date: 20140110
  Transmission Date: 20141002
  Serious: Yes (Other)
  Sender: FDA-Public Use
  Company Number: 2013AP010619

PATIENT
  Age: 24 Year
  Sex: Male

DRUGS (2)
  1. PAROXETINE [Suspect]
     Indication: DEPRESSED MOOD
     Route: 048
     Dates: start: 20130824, end: 20130828
  2. ALPRAZOLAM [Suspect]
     Indication: PANIC ATTACK
     Dosage: ORAL_DROP; PO;QD
     Route: 048
     Dates: start: 20130808, end: 20130828

REACTIONS (5)
  - Heat stroke [None]
  - Diarrhoea [None]
  - Myalgia [None]
  - Tremor [None]
  - Tremor [None]
